FAERS Safety Report 8613770 (Version 3)
Quarter: 2013Q3

REPORT INFORMATION
  Report Type: Spontaneous
  Country: US (occurrence: US)
  Receive Date: 20120614
  Receipt Date: 20130808
  Transmission Date: 20140515
  Serious: Yes (Disabling, Other)
  Sender: FDA-Public Use
  Company Number: US-ASTRAZENECA-2012SE36243

PATIENT
  Age: 59 Year
  Sex: Female

DRUGS (8)
  1. NEXIUM [Suspect]
     Indication: GASTROOESOPHAGEAL REFLUX DISEASE
     Dosage: ONCE DAILY
     Route: 048
     Dates: start: 2004
  2. TUMS OTC [Concomitant]
  3. ZANTAC OTC [Concomitant]
  4. PREVACID OTC [Concomitant]
  5. ROLAIDS [Concomitant]
  6. ALKA SELTZER [Concomitant]
  7. PEPTO BISMOL [Concomitant]
  8. MYLANTA [Concomitant]

REACTIONS (9)
  - Bone pain [Unknown]
  - Neoplasm malignant [Unknown]
  - Cerebrovascular accident [Unknown]
  - Hepatitis C [Unknown]
  - Osteoporosis [Unknown]
  - Wrist fracture [Unknown]
  - Arthropathy [Unknown]
  - Arthralgia [Unknown]
  - Depression [Unknown]
